FAERS Safety Report 9902622 (Version 2)
Quarter: 2014Q1

REPORT INFORMATION
  Report Type: Spontaneous
  Country: US (occurrence: US)
  Receive Date: 20140217
  Receipt Date: 20140217
  Transmission Date: 20141002
  Serious: No
  Sender: FDA-Public Use
  Company Number: US-GILEAD-2011-0043882

PATIENT
  Sex: Female

DRUGS (2)
  1. LETAIRIS [Suspect]
     Indication: PRODUCT USED FOR UNKNOWN INDICATION
     Route: 048
     Dates: start: 20100524
  2. ADCIRCA [Concomitant]

REACTIONS (4)
  - Erythema [Unknown]
  - Erythema [Unknown]
  - Rash macular [Unknown]
  - Flushing [Unknown]
